FAERS Safety Report 9159990 (Version 1)
Quarter: 2013Q1

REPORT INFORMATION
  Report Type: Spontaneous
  Country: DE (occurrence: DK)
  Receive Date: 20130313
  Receipt Date: 20130313
  Transmission Date: 20140127
  Serious: Yes (Hospitalization)
  Sender: FDA-Public Use
  Company Number: DK-FRI-1000041081

PATIENT
  Age: 81 Year
  Sex: Male

DRUGS (9)
  1. MEMANTINE [Suspect]
     Indication: DEMENTIA ALZHEIMER^S TYPE
     Dosage: 5 MG
     Route: 048
     Dates: start: 20120704, end: 20130104
  2. AMLODIPINE BESILATE [Concomitant]
  3. ARICEPT [Concomitant]
  4. CITALOPRAM ALTERNOVA [Concomitant]
     Indication: DEPRESSED MOOD
  5. TRAVATAN [Concomitant]
  6. RAMIPRIL [Concomitant]
  7. SALURES-K [Concomitant]
  8. ALBYL-ENTEROSOLUBILE [Concomitant]
  9. KALEORID [Concomitant]

REACTIONS (1)
  - Ventricular extrasystoles [Unknown]
